FAERS Safety Report 20404610 (Version 1)
Quarter: 2022Q1

REPORT INFORMATION
  Report Type: Spontaneous
  Country: IT (occurrence: IT)
  Receive Date: 20220131
  Receipt Date: 20220131
  Transmission Date: 20220423
  Serious: Yes (Hospitalization)
  Sender: FDA-Public Use
  Company Number: None

PATIENT
  Age: 68 Year
  Sex: Female
  Weight: 52 kg

DRUGS (1)
  1. ULTRAVIST [Suspect]
     Active Substance: IOPROMIDE
     Indication: Computerised tomogram
     Dosage: 100 ML, ONCE
     Route: 042
     Dates: start: 20220119, end: 20220119

REACTIONS (6)
  - Cold sweat [Unknown]
  - Loss of consciousness [Unknown]
  - Nausea [Unknown]
  - Abdominal pain upper [Unknown]
  - Muscle twitching [Unknown]
  - Trismus [Unknown]

NARRATIVE: CASE EVENT DATE: 20220119
